FAERS Safety Report 6818581-7 (Version None)
Quarter: 2010Q3

REPORT INFORMATION
  Report Type: 
  Country: None (occurrence: None)
  Receive Date: 20100706
  Receipt Date: 20090106
  Transmission Date: 20110219
  Serious: No
  Sender: FDA-Public Use
  Company Number: US-PFIZER INC-2009152952

PATIENT
  Sex: Male
  Weight: 10.884 kg

DRUGS (5)
  1. ZITHROMAX [Suspect]
     Indication: OTITIS MEDIA
     Dosage: UNK
     Dates: start: 20081230, end: 20081230
  2. IBUPROFEN [Concomitant]
     Indication: PYREXIA
  3. TYLENOL [Concomitant]
     Indication: PYREXIA
  4. CEFTRIAXONE [Concomitant]
  5. CEFDINIR [Concomitant]

REACTIONS (1)
  - VOMITING [None]
